FAERS Safety Report 5504101-6 (Version None)
Quarter: 2007Q4

REPORT INFORMATION
  Report Type: 
  Country: None (occurrence: None)
  Receive Date: 20071101
  Receipt Date: 20071024
  Transmission Date: 20080405
  Serious: Yes (Hospitalization, Other)
  Sender: FDA-Public Use
  Company Number: CA-ELI_LILLY_AND_COMPANY-CA200704005168

PATIENT
  Sex: Female
  Weight: 42.63 kg

DRUGS (15)
  1. FORTEO [Suspect]
     Indication: OSTEOPOROSIS
     Dosage: 20 UG, DAILY (1/D)
     Route: 058
     Dates: start: 20051114, end: 20070105
  2. TOPAMAX [Concomitant]
     Indication: PAIN
     Dates: start: 20060801
  3. DEMEROL /CAN/ [Concomitant]
  4. TYLENOL [Concomitant]
  5. OGEN [Concomitant]
     Dosage: UNK, UNK
  6. OGEN [Concomitant]
     Dosage: 1.25 MG, DAILY (1/D)
     Route: 048
     Dates: start: 20070401
  7. CALCIUM [Concomitant]
  8. CALCIUM [Concomitant]
     Dates: start: 20070401
  9. OSTOFORTE [Concomitant]
     Dosage: UNK, UNK
  10. OSTOFORTE [Concomitant]
     Dosage: 50000 IU, 2/W
     Dates: start: 20070401
  11. VITAMIN B-12 [Concomitant]
  12. VITAMIN B-12 [Concomitant]
     Dates: start: 20070401
  13. MIACALCIN [Concomitant]
  14. MIACALCIN [Concomitant]
     Dosage: 2 D/F, DAILY (1/D)
     Route: 055
     Dates: start: 20070401
  15. MULTIVITAMIN                       /00831701/ [Concomitant]

REACTIONS (37)
  - ANAPHYLACTIC REACTION [None]
  - ANXIETY [None]
  - ASTHENIA [None]
  - BOWEL MOVEMENT IRREGULARITY [None]
  - BURNING SENSATION [None]
  - CARDIOVASCULAR INSUFFICIENCY [None]
  - CHEST DISCOMFORT [None]
  - CHEST PAIN [None]
  - CHOKING SENSATION [None]
  - DEPRESSED LEVEL OF CONSCIOUSNESS [None]
  - DIZZINESS [None]
  - DYSPEPSIA [None]
  - DYSPHAGIA [None]
  - DYSPNOEA [None]
  - GASTROOESOPHAGEAL REFLUX DISEASE [None]
  - GENERALISED ANXIETY DISORDER [None]
  - GLUCOSE TOLERANCE IMPAIRED [None]
  - HERPES ZOSTER [None]
  - HYPOAESTHESIA [None]
  - LIMB DISCOMFORT [None]
  - MAJOR DEPRESSION [None]
  - MUSCLE SPASMS [None]
  - MUSCULAR WEAKNESS [None]
  - NASOPHARYNGITIS [None]
  - NEURALGIA [None]
  - NIGHT SWEATS [None]
  - PARAESTHESIA [None]
  - PHARYNGEAL OEDEMA [None]
  - PYREXIA [None]
  - RIB FRACTURE [None]
  - SENSATION OF FOREIGN BODY [None]
  - SKIN DISCOLOURATION [None]
  - SOMATOFORM DISORDER [None]
  - SWOLLEN TONGUE [None]
  - THERAPEUTIC RESPONSE UNEXPECTED [None]
  - THROAT IRRITATION [None]
  - WEIGHT DECREASED [None]
